FAERS Safety Report 12556740 (Version 5)
Quarter: 2017Q3

REPORT INFORMATION
  Report Type: Spontaneous
  Country: CA (occurrence: CA)
  Receive Date: 20160714
  Receipt Date: 20170724
  Transmission Date: 20171127
  Serious: Yes (Death, Hospitalization, Other)
  Sender: FDA-Public Use
  Company Number: CA-PFIZER INC-2015001107

PATIENT
  Age: 59 Year
  Sex: Female

DRUGS (2)
  1. METHOTREXATE SODIUM. [Suspect]
     Active Substance: METHOTREXATE SODIUM
     Indication: RHEUMATOID ARTHRITIS
     Dosage: 15-25 MG WEEKLY FOR MORE THAN 25 YEARS
  2. HYDROXYCHLOROQUINE [Suspect]
     Active Substance: HYDROXYCHLOROQUINE
     Indication: RHEUMATOID ARTHRITIS
     Dosage: 200-400 MG DAILY FOR MORE THAN  14 YEARS

REACTIONS (3)
  - Cardiomyopathy [Fatal]
  - Cardiac failure [Fatal]
  - Seizure [Unknown]

NARRATIVE: CASE EVENT DATE: 2013
